FAERS Safety Report 8545224-7 (Version None)
Quarter: 2012Q3

REPORT INFORMATION
  Report Type: 
  Country: None (occurrence: None)
  Receive Date: 20120727
  Receipt Date: 20120604
  Transmission Date: 20120928
  Serious: No
  Sender: FDA-Public Use
  Company Number: US-009507513-2012SP023593

PATIENT

DRUGS (2)
  1. CLARITIN [Suspect]
     Indication: MEDICAL OBSERVATION
     Dosage: 10 MG, QD
     Route: 048
     Dates: start: 20120320, end: 20120420
  2. CLARITIN [Suspect]
     Indication: HYPERSENSITIVITY
     Dosage: 10 MG, ONCE
     Route: 048
     Dates: start: 20120403

REACTIONS (5)
  - FREQUENT BOWEL MOVEMENTS [None]
  - CONFUSIONAL STATE [None]
  - DRUG EFFECT DECREASED [None]
  - SOMNOLENCE [None]
  - DIZZINESS [None]
